FAERS Safety Report 13410014 (Version 2)
Quarter: 2018Q1

REPORT INFORMATION
  Report Type: Spontaneous
  Country: KR (occurrence: KR)
  Receive Date: 20170406
  Receipt Date: 20180102
  Transmission Date: 20180508
  Serious: Yes (Hospitalization, Other)
  Sender: FDA-Public Use
  Company Number: KR-PFIZER INC-2017144124

PATIENT
  Age: 88 Year
  Sex: Male

DRUGS (6)
  1. PELUBIPROFEN [Concomitant]
     Indication: BURSITIS
     Dosage: 30 MG, DAILY
  2. PREGABALIN. [Suspect]
     Active Substance: PREGABALIN
     Indication: NEURALGIA
     Dosage: 75 MG, 2X/DAY (150 MG PER DAY)
  3. PREGABALIN. [Suspect]
     Active Substance: PREGABALIN
     Dosage: 225 MG, DAILY(150 MG AT MORNING AND 75 MG AT DINNER).
  4. DOXOFYLLINE [Concomitant]
     Active Substance: DOXOFYLLINE
     Indication: ASTHMA
     Dosage: 400 MG, 2X/DAY
  5. AMLODIPINE [Concomitant]
     Active Substance: AMLODIPINE BESYLATE
     Indication: HYPERTENSION
     Dosage: 5 MG, 2X/DAY
  6. MONTELUKAST SODIUM. [Concomitant]
     Active Substance: MONTELUKAST SODIUM
     Indication: ASTHMA
     Dosage: 10 MG, DAILY

REACTIONS (2)
  - Hypercapnia [Recovered/Resolved]
  - Acute respiratory failure [Recovered/Resolved]
